FAERS Safety Report 8621849-5 (Version None)
Quarter: 2012Q3

REPORT INFORMATION
  Report Type: 
  Country: None (occurrence: None)
  Receive Date: 20120822
  Receipt Date: 20120822
  Transmission Date: 20120928
  Serious: Yes (Other)
  Sender: FDA-Public Use
  Company Number: None

PATIENT
  Age: 78 Year
  Sex: Male
  Weight: 113.6 kg

DRUGS (1)
  1. PIOGLITAZONE HCL [Suspect]
     Indication: CARDIAC FAILURE CONGESTIVE
     Dosage: 45 MG EVERY DAY PO
     Route: 048
     Dates: start: 20100317, end: 20110128

REACTIONS (2)
  - MENTAL STATUS CHANGES [None]
  - CARDIAC FAILURE [None]
